FAERS Safety Report 25060135 (Version 1)
Quarter: 2025Q1

REPORT INFORMATION
  Report Type: Spontaneous
  Country: MX (occurrence: MX)
  Receive Date: 20250310
  Receipt Date: 20250310
  Transmission Date: 20250409
  Serious: Yes (Hospitalization)
  Sender: BAYER HEALTHCARE LLC
  Company Number: MX-BAYER-2025A031945

PATIENT
  Age: 31 Year
  Sex: Male

DRUGS (2)
  1. FLANAX [Suspect]
     Active Substance: NAPROXEN SODIUM
     Indication: Wisdom teeth removal
     Dosage: 1 DF, QD
     Dates: start: 20250228
  2. CLONAZEPAM [Concomitant]
     Active Substance: CLONAZEPAM

REACTIONS (3)
  - Mouth haemorrhage [Recovering/Resolving]
  - Thirst [Recovered/Resolved]
  - Oropharyngeal pain [Recovered/Resolved]

NARRATIVE: CASE EVENT DATE: 20250301
